FAERS Safety Report 9068082 (Version 2)
Quarter: 2013Q4

REPORT INFORMATION
  Report Type: Spontaneous
  Country: US (occurrence: US)
  Receive Date: 20130215
  Receipt Date: 20131010
  Transmission Date: 20140711
  Serious: No
  Sender: FDA-Public Use
  Company Number: US-BIOGENIDEC-2013BI013159

PATIENT
  Age: 51 Year
  Sex: Female

DRUGS (1)
  1. TYSABRI [Suspect]
     Indication: MULTIPLE SCLEROSIS
     Route: 042
     Dates: start: 20120816

REACTIONS (13)
  - Amnesia [Not Recovered/Not Resolved]
  - Cognitive disorder [Not Recovered/Not Resolved]
  - Speech disorder [Not Recovered/Not Resolved]
  - Migraine [Recovered/Resolved]
  - Toothache [Recovered/Resolved]
  - Tooth fracture [Recovered/Resolved]
  - Memory impairment [Recovered/Resolved]
  - Neurogenic bladder [Recovered/Resolved]
  - Multiple sclerosis relapse [Recovered/Resolved]
  - Nausea [Recovered/Resolved]
  - Fatigue [Recovered/Resolved]
  - Tooth abscess [Recovered/Resolved]
  - Headache [Recovered/Resolved]
